FAERS Safety Report 8215011-8 (Version None)
Quarter: 2012Q1

REPORT INFORMATION
  Report Type: 
  Country: None (occurrence: None)
  Receive Date: 20120229
  Receipt Date: 20110620
  Transmission Date: 20120608
  Serious: Yes (Hospitalization)
  Sender: FDA-Public Use
  Company Number: PHHY2011US55723

PATIENT
  Age: 12 Year
  Sex: Female

DRUGS (4)
  1. TACROLIMUS [Concomitant]
  2. NEORAL [Suspect]
     Indication: PROPHYLAXIS AGAINST TRANSPLANT REJECTION
  3. AZATHIOPRINE [Concomitant]
  4. MYCOPHENOLATE MOFETIL [Concomitant]

REACTIONS (1)
  - CYTOMEGALOVIRUS INFECTION [None]
